FAERS Safety Report 14370443 (Version 1)
Quarter: 2018Q1

REPORT INFORMATION
  Report Type: Spontaneous
  Country: US (occurrence: US)
  Receive Date: 20180110
  Receipt Date: 20180110
  Transmission Date: 20180509
  Serious: No
  Sender: FDA-Public Use
  Company Number: US-TEVA-2017-US-842132

PATIENT
  Sex: Female

DRUGS (1)
  1. FENTAPAT-A [Suspect]
     Active Substance: FENTANYL
     Route: 062
     Dates: start: 20171225

REACTIONS (2)
  - Product adhesion issue [Unknown]
  - Wrong technique in product usage process [Unknown]

NARRATIVE: CASE EVENT DATE: 20171225
